FAERS Safety Report 15519091 (Version 1)
Quarter: 2018Q4

REPORT INFORMATION
  Report Type: Spontaneous
  Country: US (occurrence: US)
  Receive Date: 20181017
  Receipt Date: 20181017
  Transmission Date: 20190205
  Serious: No
  Sender: FDA-Public Use
  Company Number: US-SA-2018SA277294

PATIENT
  Sex: Female

DRUGS (3)
  1. CAPZASIN QUICK RELIEF GEL [Suspect]
     Active Substance: CAPSAICIN
     Indication: HEADACHE
  2. CAPZASIN QUICK RELIEF GEL [Suspect]
     Active Substance: CAPSAICIN
     Indication: NECK PAIN
  3. CAPZASIN QUICK RELIEF GEL [Suspect]
     Active Substance: CAPSAICIN
     Indication: MIGRAINE

REACTIONS (2)
  - Erythema [Unknown]
  - Burning sensation [Unknown]

NARRATIVE: CASE EVENT DATE: 20181003
